FAERS Safety Report 15295502 (Version 1)
Quarter: 2018Q3

REPORT INFORMATION
  Report Type: Report from Study
  Country: TW (occurrence: TW)
  Receive Date: 20180820
  Receipt Date: 20180820
  Transmission Date: 20181010
  Serious: Yes (Other)
  Sender: FDA-Public Use
  Company Number: PHHY2018TW053387

PATIENT
  Age: 89 Year
  Sex: Male

DRUGS (2)
  1. EXELON PATCH [Suspect]
     Active Substance: RIVASTIGMINE
     Indication: PRODUCT USED FOR UNKNOWN INDICATION
     Dosage: 4.6 MG, QD PATCH 5 (CM2)
     Route: 062
     Dates: start: 20160616, end: 20170628
  2. EXELON PATCH [Suspect]
     Active Substance: RIVASTIGMINE
     Dosage: 9.5 MG, QD PATCH 10 (CM2)
     Route: 062
     Dates: start: 20170629

REACTIONS (5)
  - Facial paralysis [Recovered/Resolved]
  - Heart rate decreased [Unknown]
  - Hypertension [Unknown]
  - Renal impairment [Unknown]
  - Facial nerve disorder [Unknown]

NARRATIVE: CASE EVENT DATE: 20180417
